FAERS Safety Report 5086002-3 (Version None)
Quarter: 2006Q3

REPORT INFORMATION
  Report Type: 
  Country: None (occurrence: None)
  Receive Date: 20060817
  Receipt Date: 20060803
  Transmission Date: 20061208
  Serious: Yes (Other)
  Sender: FDA-Public Use
  Company Number: 028-20785-04090595

PATIENT
  Age: 45 Year
  Sex: Female

DRUGS (4)
  1. THALOMID [Suspect]
     Indication: MULTIPLE MYELOMA
     Dosage: SEE IMAGE
     Route: 048
     Dates: start: 20050701
  2. THALOMID [Suspect]
     Dosage: ORAL
     Route: 048
     Dates: start: 20041001, end: 20041101
  3. THALOMID [Suspect]
     Dosage: 150 MG, DAILY, ORAL
     Route: 048
     Dates: start: 20041101
  4. DECADRON [Concomitant]

REACTIONS (3)
  - BLOOD HUMAN CHORIONIC GONADOTROPIN POSITIVE [None]
  - DEEP VEIN THROMBOSIS [None]
  - PREGNANCY TEST NEGATIVE [None]
